FAERS Safety Report 7633243-4 (Version None)
Quarter: 2011Q3

REPORT INFORMATION
  Report Type: 
  Country: None (occurrence: None)
  Receive Date: 20110725
  Receipt Date: 20110721
  Transmission Date: 20111222
  Serious: Yes (Hospitalization)
  Sender: FDA-Public Use
  Company Number: AU-TEVA-281134ISR

PATIENT
  Sex: Female

DRUGS (10)
  1. METOCLOPRAMIDE [Concomitant]
     Indication: NAUSEA
  2. DEXAMETHASONE [Suspect]
     Indication: MULTIPLE MYELOMA
     Dates: start: 20100521
  3. LENALIDOMIDE [Suspect]
     Route: 048
     Dates: start: 20101203
  4. MICROLAX [Concomitant]
     Route: 058
  5. DEXAMETHASONE [Suspect]
     Dates: start: 20101202
  6. DOCUSATE SODIUM [Concomitant]
     Indication: CONSTIPATION
  7. SENNA ALEXANDRINA [Concomitant]
     Indication: CONSTIPATION
  8. LIDOCAINE [Concomitant]
     Indication: MOUTH ULCERATION
     Route: 061
  9. METOCLOPRAMIDE [Concomitant]
     Indication: VOMITING
  10. LENALIDOMIDE [Suspect]
     Indication: MULTIPLE MYELOMA
     Route: 048
     Dates: start: 20100521

REACTIONS (1)
  - LOSS OF CONSCIOUSNESS [None]
